FAERS Safety Report 4747955-3 (Version None)
Quarter: 2005Q3

REPORT INFORMATION
  Report Type: 
  Country: None (occurrence: None)
  Receive Date: 20050816
  Receipt Date: 20050808
  Transmission Date: 20060218
  Serious: No
  Sender: FDA-Public Use
  Company Number: TPA2005A00906

PATIENT
  Age: 53 Year
  Sex: Female
  Weight: 74.8435 kg

DRUGS (4)
  1. ACTOS [Suspect]
     Indication: DIABETES MELLITUS NON-INSULIN-DEPENDENT
     Dosage: 7.5 MG, 1 IN 1 D, PER ORAL; 7.5 MG, 2 IN 1 D, PER ORAL
     Route: 048
     Dates: start: 20050504, end: 20050603
  2. ACTOS [Suspect]
     Indication: DIABETES MELLITUS NON-INSULIN-DEPENDENT
     Dosage: 7.5 MG, 1 IN 1 D, PER ORAL; 7.5 MG, 2 IN 1 D, PER ORAL
     Route: 048
     Dates: start: 20050604, end: 20050613
  3. BYETTA [Suspect]
     Indication: DIABETES MELLITUS NON-INSULIN-DEPENDENT
     Dosage: 5 MCG, 2 IN 1 D, SUBCUTANEOUS
     Route: 058
     Dates: start: 20050603
  4. ZOLOFT [Concomitant]

REACTIONS (5)
  - DECREASED APPETITE [None]
  - DRUG INTERACTION [None]
  - HYPERSENSITIVITY [None]
  - INJECTION SITE HAEMORRHAGE [None]
  - PAIN IN EXTREMITY [None]
